FAERS Safety Report 7146541-8 (Version None)
Quarter: 2010Q4

REPORT INFORMATION
  Report Type: 
  Country: None (occurrence: None)
  Receive Date: 20101208
  Receipt Date: 20101201
  Transmission Date: 20110411
  Serious: Yes (Other)
  Sender: FDA-Public Use
  Company Number: CHPA2010US18469

PATIENT
  Age: 59 Year
  Sex: Male
  Weight: 81.633 kg

DRUGS (4)
  1. THERAFLU WARMING RELIEF SINUS + COLD (NCH) [Suspect]
     Indication: INFLUENZA LIKE ILLNESS
     Dosage: 1 CAPFUL, ONCE
     Route: 048
     Dates: start: 20101201, end: 20101201
  2. THERAFLU WARMING RELIEF SINUS + COLD (NCH) [Suspect]
     Indication: NASOPHARYNGITIS
     Dosage: UNK, UNK
     Route: 048
     Dates: start: 20101101
  3. THERAFLU WARMING RELIEF SINUS + COLD (NCH) [Suspect]
     Indication: UPPER RESPIRATORY TRACT CONGESTION
  4. BENAZEPRIL HYDROCHLORIDE [Concomitant]
     Indication: HYPERTENSION
     Dosage: 2 DF, QD
     Route: 048

REACTIONS (3)
  - DEHYDRATION [None]
  - EYE DISORDER [None]
  - MUSCULAR WEAKNESS [None]
